FAERS Safety Report 20406757 (Version 3)
Quarter: 2022Q1

REPORT INFORMATION
  Report Type: Report from Study
  Country: US (occurrence: None)
  Receive Date: 20220131
  Receipt Date: 20220310
  Transmission Date: 20220423
  Serious: Yes (Hospitalization)
  Sender: FDA-Public Use
  Company Number: US-ROCHE-3007390

PATIENT
  Age: 69 Year
  Sex: Female
  Weight: 76.2 kg

DRUGS (16)
  1. TIRAGOLUMAB [Suspect]
     Active Substance: TIRAGOLUMAB
     Indication: Metastatic neoplasm
     Dosage: ON 28/DEC/2021, AT 2:20 PM TILL 2:50 PM RECENT DOSE OF TIRAGOLUMAB PRIOR TO AE: 600 MG
     Route: 042
     Dates: start: 20210506
  2. ATEZOLIZUMAB [Suspect]
     Active Substance: ATEZOLIZUMAB
     Indication: Metastatic neoplasm
     Dosage: ON 28/DEC/2021, FROM 12:57 PM TILL 1:35 PM RECEIVED MOST RECENT DOSE OF ATEZOLIZUMAB PRIOR TO AE: 12
     Route: 041
     Dates: start: 20210506
  3. CAPECITABINE [Suspect]
     Active Substance: CAPECITABINE
     Indication: Metastatic neoplasm
     Dosage: ON 25/MAY/2021, RECEIVED MOST RECENT DOSE OF CAPECITABINE PRIOR TO AE: 2000 MG
     Route: 048
     Dates: start: 20210506
  4. PANTOPRAZOLE [Concomitant]
     Active Substance: PANTOPRAZOLE
     Indication: Gastrooesophageal reflux disease
     Route: 048
     Dates: start: 2018
  5. METRONIDAZOLE [Concomitant]
     Active Substance: METRONIDAZOLE
     Indication: Rosacea
     Route: 061
     Dates: start: 202103
  6. PRADAXA [Concomitant]
     Active Substance: DABIGATRAN ETEXILATE MESYLATE
     Indication: Portal vein thrombosis
     Route: 048
     Dates: start: 2010
  7. ESCITALOPRAM [Concomitant]
     Active Substance: ESCITALOPRAM OXALATE
     Indication: Depression
     Route: 048
     Dates: start: 201709
  8. LORAZEPAM [Concomitant]
     Active Substance: LORAZEPAM
     Indication: Anxiety
     Route: 048
     Dates: start: 201710
  9. CALCIUM CARBONATE [Concomitant]
     Active Substance: CALCIUM CARBONATE
     Route: 048
     Dates: start: 201307
  10. IMODIUM [Concomitant]
     Active Substance: LOPERAMIDE HYDROCHLORIDE
     Indication: Diarrhoea
     Route: 048
     Dates: start: 20210520
  11. POTASSIUM PHOSPHATES [Concomitant]
     Active Substance: POTASSIUM PHOSPHATE, DIBASIC\POTASSIUM PHOSPHATE, MONOBASIC
     Indication: Hypophosphataemia
     Route: 048
     Dates: start: 20210601
  12. SODIUM PHOSPHATE [Concomitant]
     Active Substance: SODIUM PHOSPHATE
     Indication: Hypophosphataemia
     Route: 048
     Dates: start: 20210601
  13. DIPHENOXYLATE [Concomitant]
     Active Substance: DIPHENOXYLATE
     Indication: Diarrhoea
     Route: 048
     Dates: start: 20210601
  14. TRIAMCINOLONE [Concomitant]
     Active Substance: TRIAMCINOLONE
     Indication: Rash
     Route: 061
     Dates: start: 20210615
  15. ELIQUIS [Concomitant]
     Active Substance: APIXABAN
     Indication: Deep vein thrombosis
     Route: 048
     Dates: start: 20210624
  16. TYLENOL [Concomitant]
     Active Substance: ACETAMINOPHEN
     Indication: Back pain
     Route: 048
     Dates: start: 20210824

REACTIONS (2)
  - Fall [Unknown]
  - Metastases to central nervous system [Not Recovered/Not Resolved]

NARRATIVE: CASE EVENT DATE: 20220118
